FAERS Safety Report 16750617 (Version 1)
Quarter: 2019Q3

REPORT INFORMATION
  Report Type: Report from Study
  Country: JP (occurrence: JP)
  Receive Date: 20190828
  Receipt Date: 20190828
  Transmission Date: 20191005
  Serious: Yes (Death)
  Sender: FDA-Public Use
  Company Number: JP-PFIZER INC-2019369598

PATIENT

DRUGS (1)
  1. INFLIXIMAB [Suspect]
     Active Substance: INFLIXIMAB
     Indication: INFLAMMATORY BOWEL DISEASE
     Dosage: UNK

REACTIONS (4)
  - Retroperitoneal haemorrhage [Fatal]
  - Pancytopenia [Fatal]
  - Pneumonia [Fatal]
  - Cytomegalovirus infection [Fatal]
